FAERS Safety Report 7792117-9 (Version None)
Quarter: 2011Q4

REPORT INFORMATION
  Report Type: 
  Country: None (occurrence: None)
  Receive Date: 20111003
  Receipt Date: 20110929
  Transmission Date: 20120403
  Serious: Yes (Death, Hospitalization)
  Sender: FDA-Public Use
  Company Number: FR-ROCHE-695027

PATIENT
  Age: 39 Year
  Sex: Female

DRUGS (16)
  1. PREDNISONE [Concomitant]
  2. PREDNISONE [Concomitant]
  3. PREDNISONE [Concomitant]
  4. MYCOPHENOLATE MOFETIL [Suspect]
     Indication: POLYMYOSITIS
     Route: 065
  5. IMURAN [Suspect]
     Indication: POLYMYOSITIS
     Route: 065
     Dates: start: 20021101, end: 20050201
  6. CYCLOSPORINE [Suspect]
     Indication: POLYMYOSITIS
     Route: 065
  7. METHOTREXATE [Suspect]
     Indication: POLYMYOSITIS
     Route: 065
     Dates: start: 20011201, end: 20021101
  8. PREDNISONE [Concomitant]
     Dates: start: 20060301, end: 20070501
  9. MABTHERA [Suspect]
     Indication: POLYMYOSITIS
     Route: 042
  10. MABTHERA [Suspect]
     Dosage: FORM: INFUSION
     Route: 042
  11. PREDNISONE [Concomitant]
  12. MABTHERA [Suspect]
     Route: 042
  13. PREDNISONE [Concomitant]
     Indication: POLYMYOSITIS
  14. MABTHERA [Suspect]
     Route: 042
  15. MABTHERA [Suspect]
     Route: 042
  16. PREDNISONE [Concomitant]

REACTIONS (3)
  - PROGRESSIVE MULTIFOCAL LEUKOENCEPHALOPATHY [None]
  - DRUG INEFFECTIVE [None]
  - PNEUMONIA ASPIRATION [None]
